FAERS Safety Report 23574163 (Version 1)
Quarter: 2024Q1

REPORT INFORMATION
  Report Type: Spontaneous
  Country: US (occurrence: US)
  Receive Date: 20240228
  Receipt Date: 20240228
  Transmission Date: 20240410
  Serious: No
  Sender: FDA-Public Use
  Company Number: US-AMNEAL PHARMACEUTICALS-2023-AMRX-03047

PATIENT
  Sex: Female

DRUGS (1)
  1. RIVASTIGMINE [Suspect]
     Active Substance: RIVASTIGMINE
     Indication: Product used for unknown indication
     Dosage: 4.6/24 MG/HOURS
     Route: 062

REACTIONS (2)
  - Product adhesion issue [Unknown]
  - No adverse event [Unknown]
